FAERS Safety Report 6834780-2 (Version None)
Quarter: 2010Q3

REPORT INFORMATION
  Report Type: 
  Country: None (occurrence: None)
  Receive Date: 20100712
  Receipt Date: 20090907
  Transmission Date: 20110219
  Serious: No
  Sender: FDA-Public Use
  Company Number: US-PFIZER INC-2007032932

PATIENT
  Sex: Female
  Weight: 68.6 kg

DRUGS (10)
  1. CHANTIX [Suspect]
     Indication: SMOKING CESSATION THERAPY
     Dosage: 1 MG, 2X/DAY
     Dates: start: 20070309, end: 20070421
  2. QUININE SULFATE [Concomitant]
  3. LISINOPRIL [Concomitant]
  4. XANAX [Concomitant]
  5. METOPROLOL [Concomitant]
  6. PREMARIN [Concomitant]
  7. LEVOTHYROXINE [Concomitant]
  8. PROTONIX [Concomitant]
  9. BELLADONNA EXTRACT [Concomitant]
  10. LIPITOR [Concomitant]

REACTIONS (4)
  - DYSPNOEA [None]
  - MALAISE [None]
  - STRESS [None]
  - VOMITING [None]
